FAERS Safety Report 9381703 (Version 1)
Quarter: 2013Q3

REPORT INFORMATION
  Report Type: Spontaneous
  Country: US (occurrence: US)
  Receive Date: 20130703
  Receipt Date: 20130703
  Transmission Date: 20140515
  Serious: No
  Sender: FDA-Public Use
  Company Number: US-ROXANE LABORATORIES, INC.-2013-RO-01061RO

PATIENT
  Sex: Female

DRUGS (2)
  1. MONTELUKAST SODIUM [Suspect]
     Indication: RHINITIS ALLERGIC
     Dosage: 10 MG
     Dates: start: 201305, end: 20130531
  2. MONTELUKAST SODIUM [Suspect]
     Indication: ALLERGIC SINUSITIS

REACTIONS (7)
  - Insomnia [Unknown]
  - Sleep terror [Unknown]
  - Tremor [Unknown]
  - Night sweats [Unknown]
  - Confusional state [Unknown]
  - Activities of daily living impaired [Unknown]
  - Alopecia [Unknown]
